FAERS Safety Report 5082589-5 (Version None)
Quarter: 2006Q3

REPORT INFORMATION
  Report Type: 
  Country: None (occurrence: None)
  Receive Date: 20060811
  Receipt Date: 20060802
  Transmission Date: 20061208
  Serious: Yes (Other)
  Sender: FDA-Public Use
  Company Number: 2006-08-0437

PATIENT
  Age: 42 Year
  Sex: Female
  Weight: 63.5036 kg

DRUGS (6)
  1. PEG-INTRON [Suspect]
     Indication: HEPATITIS C
     Dates: start: 20060501
  2. REBETOL [Suspect]
     Indication: HEPATITIS C
     Dosage: ORAL
     Route: 048
     Dates: start: 20060501
  3. REGLAN [Concomitant]
  4. ULTRAM [Concomitant]
  5. VALTREX [Concomitant]
  6. VERAPAMIL HYDROCHLORIDE CAPSULES [Concomitant]

REACTIONS (14)
  - ANOREXIA [None]
  - DEHYDRATION [None]
  - DYSPHAGIA [None]
  - DYSPHONIA [None]
  - FATIGUE [None]
  - INSOMNIA [None]
  - MALAISE [None]
  - MEMORY IMPAIRMENT [None]
  - ORAL CANDIDIASIS [None]
  - PHARYNGOLARYNGEAL PAIN [None]
  - SKIN LACERATION [None]
  - SLEEP TALKING [None]
  - VOMITING [None]
  - WEIGHT DECREASED [None]
